FAERS Safety Report 18569745 (Version 1)
Quarter: 2020Q4

REPORT INFORMATION
  Report Type: Spontaneous
  Country: DE (occurrence: DE)
  Receive Date: 20201202
  Receipt Date: 20201202
  Transmission Date: 20210114
  Serious: Yes (Other)
  Sender: FDA-Public Use
  Company Number: NVSC2020DE314140

PATIENT
  Age: 1 Day
  Sex: Female
  Weight: 2.16 kg

DRUGS (3)
  1. PREDNISOLONE. [Suspect]
     Active Substance: PREDNISOLONE
     Indication: FOETAL EXPOSURE DURING PREGNANCY
     Dosage: MATERNAL DOSE: 10 MG/D
     Route: 064
     Dates: start: 20191020, end: 20200705
  2. MEZAVANT [Suspect]
     Active Substance: MESALAMINE
     Indication: FOETAL EXPOSURE DURING PREGNANCY
     Dosage: MATERNAL DOSE 2400 MG, QD (2400-0-0)
     Route: 064
     Dates: start: 20191020, end: 20200705
  3. MINPROSTIN E2 [Concomitant]
     Active Substance: DINOPROSTONE
     Indication: FOETAL EXPOSURE DURING PREGNANCY
     Dosage: MATERNAL DOSE 3 MG, QD
     Route: 064

REACTIONS (5)
  - Poor weight gain neonatal [Unknown]
  - Small for dates baby [Unknown]
  - Bacterial infection [Recovered/Resolved]
  - Congenital naevus [Unknown]
  - Foetal exposure during pregnancy [Unknown]

NARRATIVE: CASE EVENT DATE: 20200705
